FAERS Safety Report 11894552 (Version 1)
Quarter: 2016Q1

REPORT INFORMATION
  Report Type: Spontaneous
  Country: US (occurrence: US)
  Receive Date: 20160107
  Receipt Date: 20160107
  Transmission Date: 20160526
  Serious: Yes (Life-Threatening, Other)
  Sender: FDA-Public Use
  Company Number: US-BAYER-2016-002549

PATIENT
  Age: 34 Year
  Sex: Female
  Weight: 72.56 kg

DRUGS (5)
  1. ALBUTEROL. [Concomitant]
     Active Substance: ALBUTEROL
  2. ATORVASTATIN [Concomitant]
     Active Substance: ATORVASTATIN
  3. ALEVE [Suspect]
     Active Substance: NAPROXEN SODIUM
     Dosage: UNK
     Route: 048
     Dates: start: 2015
  4. MIDOL EXTENDED RELIEF [Suspect]
     Active Substance: NAPROXEN SODIUM
     Indication: DYSMENORRHOEA
     Dosage: UNK
     Dates: start: 20160104
  5. HYDROCHLOROTHIAZIDE. [Concomitant]
     Active Substance: HYDROCHLOROTHIAZIDE

REACTIONS (12)
  - Mouth swelling [None]
  - Dysphagia [None]
  - Swelling face [None]
  - Swelling [None]
  - Swollen tongue [None]
  - Eye swelling [None]
  - Oesophageal disorder [None]
  - Lip swelling [None]
  - Anaphylactic reaction [None]
  - Speech disorder [None]
  - Pharyngeal oedema [None]
  - Anaphylactic shock [None]

NARRATIVE: CASE EVENT DATE: 2015
